FAERS Safety Report 6165181-0 (Version None)
Quarter: 2009Q2

REPORT INFORMATION
  Report Type: 
  Country: None (occurrence: None)
  Receive Date: 20090423
  Receipt Date: 20090416
  Transmission Date: 20091009
  Serious: Yes (Congenital Anomaly)
  Sender: FDA-Public Use
  Company Number: GB-TEVA-192064ISR

PATIENT

DRUGS (2)
  1. SERTRALINE HCL [Suspect]
     Route: 064
  2. ARIPIPRAZOLE [Suspect]
     Indication: BIPOLAR DISORDER
     Route: 064

REACTIONS (1)
  - FOETAL MALFORMATION [None]
